FAERS Safety Report 8804966 (Version 1)
Quarter: 2012Q4

REPORT INFORMATION
  Report Type: 
  Country: MY (occurrence: MY)
  Receive Date: 20120924
  Receipt Date: 20120924
  Transmission Date: 20130627
  Serious: Yes (Other)
  Sender: FDA-Public Use
  Company Number: MY-ROCHE-1133576

PATIENT

DRUGS (4)
  1. CELLCEPT [Suspect]
     Indication: MULTIPLE SCLEROSIS
     Route: 065
  2. MABTHERA [Suspect]
     Indication: MULTIPLE SCLEROSIS
     Route: 065
  3. AZATHIOPRINE [Suspect]
     Indication: MULTIPLE SCLEROSIS
     Route: 065
  4. IMMUNOGLOBULIN [Suspect]
     Indication: MULTIPLE SCLEROSIS
     Route: 065

REACTIONS (5)
  - Depression [Unknown]
  - Muscle spasticity [Unknown]
  - Hypersensitivity [Unknown]
  - Influenza like illness [Unknown]
  - Drug ineffective [Unknown]
